FAERS Safety Report 10236577 (Version 1)
Quarter: 2014Q2

REPORT INFORMATION
  Report Type: Spontaneous
  Country: DE (occurrence: DE)
  Receive Date: 20140613
  Receipt Date: 20140613
  Transmission Date: 20141212
  Serious: Yes (Death)
  Sender: FDA-Public Use
  Company Number: PHHY2014DE070172

PATIENT
  Age: 21 Year
  Sex: Female

DRUGS (5)
  1. VALPROIC ACID [Suspect]
     Indication: PARTIAL SEIZURES
  2. CLOBAZAM [Suspect]
  3. PHENYTOIN [Suspect]
  4. METOCLOPRAMIDE [Suspect]
  5. CHLORAL HYDRATE [Suspect]

REACTIONS (1)
  - Hepatic failure [Fatal]
